FAERS Safety Report 6516967-1 (Version None)
Quarter: 2009Q4

REPORT INFORMATION
  Report Type: 
  Country: None (occurrence: None)
  Receive Date: 20091223
  Receipt Date: 20091215
  Transmission Date: 20100525
  Serious: Yes (Hospitalization)
  Sender: FDA-Public Use
  Company Number: US-MILLENNIUM PHARMACEUTICALS, INC.-2009-05193

PATIENT
  Sex: Female
  Weight: 65.85 kg

DRUGS (2)
  1. VELCADE [Suspect]
     Indication: LUNG NEOPLASM MALIGNANT
     Dosage: 1.3 MG/M2, UNK
     Route: 040
     Dates: start: 20091124, end: 20091127
  2. VORINOSTAT [Suspect]
     Indication: LUNG NEOPLASM MALIGNANT
     Dosage: 400 MG, UNK
     Route: 048
     Dates: start: 20091124, end: 20091129

REACTIONS (6)
  - DYSPNOEA [None]
  - HYPOALBUMINAEMIA [None]
  - HYPONATRAEMIA [None]
  - HYPOXIA [None]
  - PLATELET COUNT DECREASED [None]
  - PLEURAL EFFUSION [None]
